FAERS Safety Report 6386499-2 (Version None)
Quarter: 2009Q4

REPORT INFORMATION
  Report Type: 
  Country: None (occurrence: None)
  Receive Date: 20091002
  Receipt Date: 20090529
  Transmission Date: 20100525
  Serious: No
  Sender: FDA-Public Use
  Company Number: US-ASTRAZENECA-2009UW13800

PATIENT
  Age: 961 Month
  Sex: Female
  Weight: 65.8 kg

DRUGS (6)
  1. ARIMIDEX [Suspect]
     Route: 048
     Dates: start: 20090101
  2. DIOVAN [Concomitant]
  3. ASPIRIN [Concomitant]
  4. FOLIC ACID [Concomitant]
  5. SLOW MAGNESIUM [Concomitant]
  6. VITAMIN D [Concomitant]

REACTIONS (2)
  - BALANCE DISORDER [None]
  - BOWEL MOVEMENT IRREGULARITY [None]
